FAERS Safety Report 10973765 (Version 1)
Quarter: 2015Q2

REPORT INFORMATION
  Report Type: Spontaneous
  Country: BR (occurrence: BR)
  Receive Date: 20150401
  Receipt Date: 20150401
  Transmission Date: 20150821
  Serious: Yes (Other)
  Sender: FDA-Public Use
  Company Number: PHHY2015BR037073

PATIENT
  Sex: Female
  Weight: 56 kg

DRUGS (14)
  1. HIDROCORTISON [Concomitant]
     Active Substance: HYDROCORTISONE
     Indication: PRODUCT USED FOR UNKNOWN INDICATION
     Dosage: UNK UNK, PRN
     Route: 065
  2. CARBONATO DE CALCIO + VITAMINA D [Concomitant]
     Indication: OSTEOPOROSIS
     Dosage: 500MG + 400 UI
     Route: 048
  3. SYNTHROID [Concomitant]
     Active Substance: LEVOTHYROXINE SODIUM
     Indication: THYROID DISORDER
     Dosage: 1 DF, QD IN FASTING CONDITION
     Route: 048
  4. HIGROTON [Concomitant]
     Active Substance: CHLORTHALIDONE
     Indication: HYPERTENSION
     Dosage: 1 DF, QD
     Route: 048
  5. LEVAMLODIPINE BESILATE [Concomitant]
     Active Substance: LEVAMLODIPINE BESILATE
     Indication: HYPERTENSION
     Dosage: 2 DF, QD
     Route: 048
  6. ARADOIS [Concomitant]
     Active Substance: LOSARTAN POTASSIUM
     Indication: HYPERTENSION
     Dosage: 2 DF, QD
     Route: 048
  7. OMEPRAZOLE. [Concomitant]
     Active Substance: OMEPRAZOLE
     Indication: CHRONIC GASTRITIS
     Dosage: 1 DF, QD
     Route: 048
  8. FORADIL [Suspect]
     Active Substance: FORMOTEROL FUMARATE
     Indication: ASTHMA
     Dosage: 2 DF, QD
     Route: 055
  9. FORADIL [Suspect]
     Active Substance: FORMOTEROL FUMARATE
     Dosage: UNK
     Route: 055
  10. DOMPERIDONE [Concomitant]
     Active Substance: DOMPERIDONE
     Indication: CHRONIC GASTRITIS
     Dosage: 2 DF, QD
     Route: 048
  11. OLCADIL [Concomitant]
     Active Substance: CLOXAZOLAM
     Indication: ANXIETY
     Dosage: 1 MG, DAILY WHEN IT WAS NECESSARY
     Route: 048
  12. CLOXAZOLAM [Concomitant]
     Active Substance: CLOXAZOLAM
     Indication: ANXIETY
     Dosage: 1 MG, DAILY, WHEN IT WAS NECESSARY
     Route: 048
  13. LEVAMLODIPINE BESILATE [Concomitant]
     Active Substance: LEVAMLODIPINE BESILATE
     Dosage: 2 DF, QD
     Route: 048
  14. ALENDRONATE [Concomitant]
     Active Substance: ALENDRONATE SODIUM
     Indication: OSTEOPOROSIS
     Dosage: 70 MG, QW
     Route: 048

REACTIONS (16)
  - Cataract [Recovered/Resolved]
  - Wrong technique in drug usage process [Unknown]
  - Drug ineffective [Unknown]
  - Fatigue [Recovering/Resolving]
  - Blindness [Recovered/Resolved]
  - Somnolence [Unknown]
  - Malaise [Unknown]
  - Insomnia [Unknown]
  - Wheezing [Unknown]
  - Inappropriate schedule of drug administration [Unknown]
  - Mobility decreased [Unknown]
  - Boredom [Recovering/Resolving]
  - Nervousness [Recovering/Resolving]
  - Asthma [Not Recovered/Not Resolved]
  - Dyspnoea [Not Recovered/Not Resolved]
  - Hypertension [Not Recovered/Not Resolved]
